FAERS Safety Report 9174087 (Version 1)
Quarter: 2013Q1

REPORT INFORMATION
  Report Type: Spontaneous
  Country: US (occurrence: US)
  Receive Date: 20130320
  Receipt Date: 20130320
  Transmission Date: 20140127
  Serious: No
  Sender: FDA-Public Use
  Company Number: US-PFIZER INC-2013087867

PATIENT
  Age: 76 Year
  Sex: Female
  Weight: 81.63 kg

DRUGS (1)
  1. ADVIL [Suspect]
     Indication: SCIATICA
     Dosage: 200 MG, AS NEEDED
     Route: 048
     Dates: start: 20130302, end: 20130310

REACTIONS (3)
  - Overdose [Unknown]
  - Local swelling [Recovered/Resolved]
  - Hypoaesthesia [Recovered/Resolved]
